FAERS Safety Report 12250335 (Version 1)
Quarter: 2016Q2

REPORT INFORMATION
  Report Type: Spontaneous
  Country: BR (occurrence: BR)
  Receive Date: 20160408
  Receipt Date: 20160408
  Transmission Date: 20160815
  Serious: Yes (Other)
  Sender: FDA-Public Use
  Company Number: BR-DSJP-DSU-2016-112034

PATIENT

DRUGS (2)
  1. OLMETEC 20MG [Suspect]
     Active Substance: OLMESARTAN MEDOXOMIL
     Indication: PRODUCT USED FOR UNKNOWN INDICATION
     Dosage: 20 MG, UNK
     Route: 048
     Dates: start: 20160329, end: 20160330
  2. OLMETEC HCT 20/12.5 [Suspect]
     Active Substance: HYDROCHLOROTHIAZIDE\OLMESARTAN MEDOXOMIL
     Indication: HYPERTENSION
     Dosage: UNK
     Dates: start: 2015

REACTIONS (13)
  - Dizziness [Unknown]
  - Treatment noncompliance [Not Recovered/Not Resolved]
  - Fear [Unknown]
  - Condition aggravated [Unknown]
  - Hyperhidrosis [Unknown]
  - Cold sweat [Unknown]
  - Angioplasty [Unknown]
  - Feeling abnormal [Unknown]
  - Fear of death [Unknown]
  - Hypotension [Unknown]
  - Nausea [Unknown]
  - Presyncope [Unknown]
  - Vomiting [Unknown]

NARRATIVE: CASE EVENT DATE: 201603
